FAERS Safety Report 5354401-8 (Version None)
Quarter: 2007Q2

REPORT INFORMATION
  Report Type: 
  Country: None (occurrence: None)
  Receive Date: 20070521
  Receipt Date: 20070213
  Transmission Date: 20071010
  Serious: No
  Sender: FDA-Public Use
  Company Number: WAES 0702USA02579

PATIENT
  Age: 64 Year
  Sex: Female
  Weight: 119.296 kg

DRUGS (19)
  1. JANUVIA [Suspect]
     Indication: DIABETES MELLITUS
     Dosage: 100 MG/DAILY/PO
     Route: 048
     Dates: start: 20070122, end: 20070206
  2. ACTONEL [Concomitant]
  3. ADVAIR DISKUS 100/50 [Concomitant]
  4. ANTIVERT [Concomitant]
  5. ATERAX [Concomitant]
  6. CARAFATE [Concomitant]
  7. COMBIVENT [Concomitant]
  8. DARVON [Concomitant]
  9. DILANTIN [Concomitant]
  10. LEVOXYL [Concomitant]
  11. NASONEX [Concomitant]
  12. NITROGLYCERIN [Concomitant]
  13. PROTONIX [Concomitant]
  14. ROBAXIN [Concomitant]
  15. SINGULAIR [Concomitant]
  16. TOPAMAX [Concomitant]
  17. ZYRTEC [Concomitant]
  18. POTASSIUM ACETATE [Concomitant]
  19. VITAMIN D [Concomitant]

REACTIONS (2)
  - PRURITUS [None]
  - RASH [None]
